FAERS Safety Report 17564681 (Version 2)
Quarter: 2020Q2

REPORT INFORMATION
  Report Type: Report from Study
  Country: GR (occurrence: GR)
  Receive Date: 20200320
  Receipt Date: 20200416
  Transmission Date: 20200713
  Serious: Yes (Death, Other)
  Sender: FDA-Public Use
  Company Number: GR-AMGEN-GRCSL2020034869

PATIENT
  Age: 72 Year
  Sex: Male
  Weight: 50 kg

DRUGS (3)
  1. ZOMETA [Concomitant]
     Active Substance: ZOLEDRONIC ACID
     Indication: BONE DISORDER
     Dosage: 4 MILLIGRAM, QMO
     Dates: start: 20190710
  2. DEXATON [DEXAMETHASONE SODIUM PHOSPHATE] [Concomitant]
     Indication: PLASMA CELL MYELOMA
     Dosage: UNK, 2 TIMES/WK
     Dates: start: 20190710
  3. KYPROLIS [Suspect]
     Active Substance: CARFILZOMIB
     Indication: PLASMA CELL MYELOMA
     Dosage: 78 MILLIGRAM, 2 TIMES/WK
     Route: 042
     Dates: start: 20190924, end: 20191224

REACTIONS (1)
  - Sudden death [Fatal]

NARRATIVE: CASE EVENT DATE: 201912
